FAERS Safety Report 6544173-3 (Version None)
Quarter: 2010Q1

REPORT INFORMATION
  Report Type: 
  Country: None (occurrence: None)
  Receive Date: 20100120
  Receipt Date: 20100108
  Transmission Date: 20100710
  Serious: Yes (Life-Threatening, Other)
  Sender: FDA-Public Use
  Company Number: PT-GENENTECH-296373

PATIENT
  Sex: Male

DRUGS (4)
  1. XOLAIR [Suspect]
     Indication: ASTHMA
     Dosage: 300 MG, Q2W
     Dates: start: 20070411, end: 20091216
  2. XOLAIR [Suspect]
     Dosage: UNK
     Dates: start: 20091216
  3. FUROSEMIDE [Concomitant]
     Indication: DRUG USE FOR UNKNOWN INDICATION
  4. PERINDOPRIL [Concomitant]
     Indication: DRUG USE FOR UNKNOWN INDICATION

REACTIONS (3)
  - DIZZINESS [None]
  - HYPOTENSION [None]
  - LOSS OF CONSCIOUSNESS [None]
